FAERS Safety Report 8602052-1 (Version None)
Quarter: 2012Q3

REPORT INFORMATION
  Report Type: 
  Country: None (occurrence: None)
  Receive Date: 20120817
  Receipt Date: 20120808
  Transmission Date: 20120928
  Serious: Yes (Other)
  Sender: FDA-Public Use
  Company Number: CA-JNJFOC-20120301876

PATIENT
  Sex: Male
  Weight: 97 kg

DRUGS (5)
  1. REMICADE [Suspect]
     Indication: CROHN'S DISEASE
     Route: 042
     Dates: start: 20120427
  2. SOLU-CORTEF [Concomitant]
     Indication: PREMEDICATION
     Route: 065
  3. REMICADE [Suspect]
     Route: 042
     Dates: start: 20120304
  4. BENADRYL [Concomitant]
     Route: 065
  5. REMICADE [Suspect]
     Route: 042
     Dates: start: 20050101

REACTIONS (5)
  - THROAT IRRITATION [None]
  - COUGH [None]
  - DYSPNOEA [None]
  - INFUSION RELATED REACTION [None]
  - THROAT TIGHTNESS [None]
